FAERS Safety Report 26131878 (Version 1)
Quarter: 2025Q4

REPORT INFORMATION
  Report Type: Spontaneous
  Country: KW (occurrence: KW)
  Receive Date: 20251208
  Receipt Date: 20251208
  Transmission Date: 20260117
  Serious: Yes (Death)
  Sender: PFIZER
  Company Number: KW-PFIZER INC-202500238768

PATIENT
  Age: 44 Year
  Sex: Male

DRUGS (1)
  1. SUTENT [Suspect]
     Active Substance: SUNITINIB MALATE
     Indication: Metastatic renal cell carcinoma
     Dosage: ONCE DAILY FOR 4 WEEKS FOLLOWED BY 2 WEEKS OFF
     Route: 048

REACTIONS (1)
  - Death [Fatal]
